FAERS Safety Report 11840598 (Version 2)
Quarter: 2015Q4

REPORT INFORMATION
  Report Type: Spontaneous
  Country: FR (occurrence: FR)
  Receive Date: 20151216
  Receipt Date: 20151221
  Transmission Date: 20160305
  Serious: Yes (Hospitalization, Other)
  Sender: FDA-Public Use
  Company Number: FR-PFIZER INC-2015442166

PATIENT
  Age: 75 Year
  Sex: Female

DRUGS (8)
  1. CALCIPARINE [Concomitant]
     Active Substance: HEPARIN CALCIUM
     Dosage: UNK
     Dates: start: 20151012
  2. XARELTO [Interacting]
     Active Substance: RIVAROXABAN
     Dosage: 1 DF, DAILY
     Route: 048
     Dates: start: 201508, end: 20151009
  3. CARDENSIEL [Concomitant]
     Active Substance: BISOPROLOL FUMARATE
     Dosage: UNK
  4. KARDEGIC [Interacting]
     Active Substance: ASPIRIN LYSINE
     Dosage: 1 DF, DAILY
     Route: 048
     Dates: start: 201508, end: 20151009
  5. CORDARONE [Suspect]
     Active Substance: AMIODARONE HYDROCHLORIDE
     Dosage: 1 DF, DAILY
     Route: 048
     Dates: start: 201508
  6. LANTUS [Concomitant]
     Active Substance: INSULIN GLARGINE
     Dosage: UNK
  7. PANTOPRAZOLE [Concomitant]
     Active Substance: PANTOPRAZOLE SODIUM
     Dosage: UNK
  8. CLOPIDOGREL SULFATE [Interacting]
     Active Substance: CLOPIDOGREL BISULFATE
     Dosage: 1 DF, DAILY
     Route: 048
     Dates: start: 201008, end: 20151009

REACTIONS (6)
  - Gastrointestinal haemorrhage [Recovered/Resolved]
  - Overdose [Unknown]
  - Haemoglobin decreased [Unknown]
  - Drug interaction [Unknown]
  - Ecchymosis [Recovered/Resolved]
  - Renal failure [Unknown]

NARRATIVE: CASE EVENT DATE: 201510
